FAERS Safety Report 5150754-4 (Version None)
Quarter: 2006Q4

REPORT INFORMATION
  Report Type: 
  Country: None (occurrence: None)
  Receive Date: 20061114
  Receipt Date: 20061101
  Transmission Date: 20070319
  Serious: Yes (Other)
  Sender: FDA-Public Use
  Company Number: JP-ELI_LILLY_AND_COMPANY-JP200611001478

PATIENT
  Age: 38 Year
  Sex: Male

DRUGS (4)
  1. ZYPREXA [Suspect]
     Indication: SCHIZOPHRENIA
     Dosage: 10 MG, DAILY (1/D)
     Route: 048
  2. ZYPREXA [Suspect]
     Dosage: 20 MG, DAILY (1/D)
     Route: 048
  3. QUETIAPINE FUMARATE [Concomitant]
     Indication: SCHIZOPHRENIA
     Dosage: 650 MG, DAILY (1/D)
     Route: 065
  4. CHLORPROMAZINE [Concomitant]
     Indication: SCHIZOPHRENIA
     Dosage: 200 MG, DAILY (1/D)
     Route: 065

REACTIONS (4)
  - ANXIETY [None]
  - HALLUCINATION, AUDITORY [None]
  - IRRITABILITY [None]
  - PAROXYSMAL PERCEPTUAL ALTERATION [None]
